FAERS Safety Report 23238451 (Version 1)
Quarter: 2023Q4

REPORT INFORMATION
  Report Type: Spontaneous
  Country: US (occurrence: US)
  Receive Date: 20231129
  Receipt Date: 20231129
  Transmission Date: 20240110
  Serious: Yes (Life-Threatening, Hospitalization)
  Sender: FDA-Public Use
  Company Number: None

PATIENT
  Age: 82 Year
  Sex: Male

DRUGS (1)
  1. CAPECITABINE [Suspect]
     Active Substance: CAPECITABINE
     Indication: Rectal adenocarcinoma
     Dates: start: 2018, end: 2018

REACTIONS (3)
  - Acute kidney injury [Unknown]
  - Hypovolaemic shock [Unknown]
  - Enteritis [Recovering/Resolving]

NARRATIVE: CASE EVENT DATE: 20180101
